FAERS Safety Report 23777240 (Version 1)
Quarter: 2024Q2

REPORT INFORMATION
  Report Type: Other
  Country: ES (occurrence: None)
  Receive Date: 20240424
  Receipt Date: 20240424
  Transmission Date: 20240716
  Serious: Yes (Other)
  Sender: FDA-Public Use
  Company Number: ES-ROCHE-3550050

PATIENT

DRUGS (1)
  1. BEVACIZUMAB [Suspect]
     Active Substance: BEVACIZUMAB
     Indication: Hereditary haemorrhagic telangiectasia
     Dosage: INDUCTION/2 WEEKS 3 MONTHS, THEN MAINTENANCE/4-12 WEEKS BASED ON THE RESPONSE.
     Route: 042
     Dates: start: 202202

REACTIONS (3)
  - Renal failure [Unknown]
  - Proteinuria [Unknown]
  - Hypertension [Unknown]
